FAERS Safety Report 21206958 (Version 1)
Quarter: 2022Q3

REPORT INFORMATION
  Report Type: Report from Study
  Country: JP (occurrence: JP)
  Receive Date: 20220812
  Receipt Date: 20220812
  Transmission Date: 20221027
  Serious: Yes (Other)
  Sender: FDA-Public Use
  Company Number: JP-JNJFOC-20220819264

PATIENT

DRUGS (1)
  1. DARATUMUMAB [Suspect]
     Active Substance: DARATUMUMAB
     Indication: Plasma cell myeloma
     Route: 058

REACTIONS (16)
  - Neutrophil count decreased [Unknown]
  - Lymphocyte count decreased [Unknown]
  - Platelet count decreased [Unknown]
  - Anaemia [Unknown]
  - Cytomegalovirus viraemia [Unknown]
  - Cytomegalovirus enterocolitis [Unknown]
  - Dehydration [Unknown]
  - Cardiac failure [Unknown]
  - Infusion related reaction [Unknown]
  - Liver disorder [Unknown]
  - Diarrhoea [Unknown]
  - Constipation [Unknown]
  - Eczema [Unknown]
  - Pyrexia [Unknown]
  - Malaise [Unknown]
  - Back pain [Unknown]
